FAERS Safety Report 21922247 (Version 2)
Quarter: 2023Q1

REPORT INFORMATION
  Report Type: Report from Study
  Country: CA (occurrence: CA)
  Receive Date: 20230128
  Receipt Date: 20230202
  Transmission Date: 20230418
  Serious: Yes (Hospitalization)
  Sender: FDA-Public Use
  Company Number: CA-ABBVIE-4265134

PATIENT
  Age: 44 Year
  Sex: Male

DRUGS (3)
  1. SKYRIZI [Suspect]
     Active Substance: RISANKIZUMAB-RZAA
     Indication: Psoriasis
     Dosage: FIRST ADMIN DATE 05 JAN 2023
     Route: 058
     Dates: start: 20230105
  2. ELIQUIS [Concomitant]
     Active Substance: APIXABAN
     Indication: Pulmonary embolism
     Route: 048
  3. TAMSULOSIN [Concomitant]
     Active Substance: TAMSULOSIN
     Indication: Hypertension
     Route: 048

REACTIONS (10)
  - Abdominal pain upper [Unknown]
  - Oropharyngeal pain [Unknown]
  - Cough [Unknown]
  - Rhinorrhoea [Unknown]
  - Chest pain [Unknown]
  - Adverse drug reaction [Unknown]
  - Angina pectoris [Unknown]
  - Malaise [Unknown]
  - Blood pressure decreased [Unknown]
  - Respiratory tract congestion [Unknown]

NARRATIVE: CASE EVENT DATE: 20230101
